FAERS Safety Report 9860856 (Version 1)
Quarter: 2014Q1

REPORT INFORMATION
  Report Type: Spontaneous
  Country: GB (occurrence: None)
  Receive Date: 20140130
  Receipt Date: 20140130
  Transmission Date: 20141002
  Serious: Yes (Other)
  Sender: FDA-Public Use
  Company Number: 2013-004095

PATIENT
  Age: 78 Year
  Sex: Female
  Weight: 75 kg

DRUGS (17)
  1. ERYC [Suspect]
     Route: 048
  2. OMEPRAZOLE [Suspect]
  3. BISOPROLOL [Suspect]
  4. DEXMEDETOMIDINE HYDROCHLORIDE [Suspect]
  5. ERYTHROMYCIN [Suspect]
  6. PANTOPRAZOLE (PANTOPRAZOLE) [Concomitant]
  7. CO-AMOXICLAV (AMOXICILLIN SODIUM, CLAVULANATE POTASSIUM) [Concomitant]
  8. ENOXAPARIN (ENOZAPARIN) [Concomitant]
  9. GABAPENTIN (GABAPENTIN) [Concomitant]
  10. PARACETAMOL (PARACETAMOL) [Concomitant]
  11. FUROSEMIDE (FUROSEMIDE) [Concomitant]
  12. PERINDOPRIL (PERINDOPRIL) [Concomitant]
  13. RIVAROABAN (RIVAROXABAN) [Concomitant]
  14. LANSOPRAZOLE (LANSOPRAZOLE) [Concomitant]
  15. NORADRENALINE (NOREPINEPHRINE) [Concomitant]
  16. PROPOFOL (PROPOFOL) [Concomitant]
  17. REMIFENTANIL (REMIFENTANIL) [Concomitant]

REACTIONS (4)
  - Aspartate aminotransferase increased [None]
  - Blood bilirubin increased [None]
  - Drug interaction [None]
  - Alanine aminotransferase increased [None]
